FAERS Safety Report 14390126 (Version 2)
Quarter: 2018Q2

REPORT INFORMATION
  Report Type: Spontaneous
  Country: US (occurrence: US)
  Receive Date: 20180116
  Receipt Date: 20180423
  Transmission Date: 20180711
  Serious: No
  Sender: FDA-Public Use
  Company Number: US-ASTRAZENECA-2018SE05803

PATIENT
  Sex: Female

DRUGS (1)
  1. IMFINZI [Suspect]
     Active Substance: DURVALUMAB
     Indication: BLADDER CANCER
     Dosage: 50.0MG/ML ONCE/SINGLE ADMINISTRATION
     Route: 040
     Dates: start: 20171214, end: 20171214

REACTIONS (9)
  - Tremor [Unknown]
  - Diarrhoea [Unknown]
  - Cough [Unknown]
  - Hypopnoea [Unknown]
  - Pyrexia [Unknown]
  - Feeling abnormal [Unknown]
  - Arthralgia [Unknown]
  - Swelling face [Unknown]
  - Hyperhidrosis [Unknown]

NARRATIVE: CASE EVENT DATE: 20171215
